FAERS Safety Report 13094206 (Version 1)
Quarter: 2017Q1

REPORT INFORMATION
  Report Type: Spontaneous
  Country: GB (occurrence: GB)
  Receive Date: 20170106
  Receipt Date: 20170106
  Transmission Date: 20170428
  Serious: Yes (Other)
  Sender: FDA-Public Use
  Company Number: GB-TEVA-726786ACC

PATIENT
  Age: 94 Year
  Sex: Female

DRUGS (2)
  1. EPROSARTAN [Suspect]
     Active Substance: EPROSARTAN
     Dosage: 300 MILLIGRAM DAILY;
     Route: 048
  2. AMLODIPINE [Suspect]
     Active Substance: AMLODIPINE BESYLATE
     Dosage: 10 MILLIGRAM DAILY;
     Route: 048

REACTIONS (2)
  - Fall [Unknown]
  - Hypotension [Unknown]
